FAERS Safety Report 5242943-5 (Version None)
Quarter: 2007Q1

REPORT INFORMATION
  Report Type: 
  Country: None (occurrence: None)
  Receive Date: 20070215
  Receipt Date: 20070206
  Transmission Date: 20070707
  Serious: Yes (Other)
  Sender: FDA-Public Use
  Company Number: 238142K06USA

PATIENT
  Age: 57 Year
  Sex: Female
  Weight: 81.6475 kg

DRUGS (6)
  1. REBIF [Suspect]
     Indication: MULTIPLE SCLEROSIS
     Dosage: 44 MCG, 3 IN 1 WEEKS, SUBCUTANEOUS
     Route: 058
     Dates: start: 20060502
  2. ZOCOR [Concomitant]
  3. PAXIL [Concomitant]
  4. YASMIN (DROSPERIDONE W/ETHINYLESTRADIOL) [Concomitant]
  5. NEURONTIN [Concomitant]
  6. NASACORT [Concomitant]

REACTIONS (3)
  - CATARACT [None]
  - MYOPIA [None]
  - RETINAL DETACHMENT [None]
